FAERS Safety Report 6332413-5 (Version None)
Quarter: 2009Q3

REPORT INFORMATION
  Report Type: 
  Country: None (occurrence: None)
  Receive Date: 20090828
  Receipt Date: 20090821
  Transmission Date: 20100115
  Serious: Yes (Hospitalization)
  Sender: FDA-Public Use
  Company Number: US-AVENTIS-200919307GDDC

PATIENT
  Age: 84 Year
  Sex: Male
  Weight: 87.95 kg

DRUGS (4)
  1. TAXOTERE [Suspect]
     Route: 042
     Dates: start: 20090805, end: 20090805
  2. PREDNISONE [Suspect]
     Route: 048
     Dates: start: 20090805, end: 20090812
  3. CODE UNBROKEN [Suspect]
     Route: 048
     Dates: start: 20090805, end: 20090812
  4. DEXAMETHASONE [Concomitant]
     Indication: PREMEDICATION
     Route: 042
     Dates: start: 20090805

REACTIONS (5)
  - CONFUSIONAL STATE [None]
  - HYPOGLYCAEMIA [None]
  - HYPONATRAEMIA [None]
  - NEUTROPENIA [None]
  - PNEUMONIA [None]
